FAERS Safety Report 8947667 (Version 1)
Quarter: 2012Q4

REPORT INFORMATION
  Report Type: 
  Country: US (occurrence: US)
  Receive Date: 20121205
  Receipt Date: 20121205
  Transmission Date: 20130627
  Serious: No
  Sender: FDA-Public Use
  Company Number: US-009507513-1212USA000935

PATIENT
  Sex: Female

DRUGS (2)
  1. CLARITIN [Suspect]
     Route: 048
  2. CLARITIN-D [Suspect]
     Route: 048

REACTIONS (2)
  - Insomnia [Unknown]
  - Nervousness [Unknown]
